FAERS Safety Report 19138170 (Version 1)
Quarter: 2021Q2

REPORT INFORMATION
  Report Type: Spontaneous
  Country: US (occurrence: US)
  Receive Date: 20210415
  Receipt Date: 20210415
  Transmission Date: 20210717
  Serious: No
  Sender: FDA-Public Use
  Company Number: US-AMGEN-USASP2021056437

PATIENT

DRUGS (1)
  1. MVASI [Suspect]
     Active Substance: BEVACIZUMAB-AWWB
     Indication: RECTAL CANCER
     Dosage: 450 MILLIGRAM
     Route: 065
     Dates: start: 202012

REACTIONS (1)
  - Fatigue [Unknown]
